FAERS Safety Report 15387898 (Version 5)
Quarter: 2019Q1

REPORT INFORMATION
  Report Type: Spontaneous
  Country: US (occurrence: US)
  Receive Date: 20180914
  Receipt Date: 20190219
  Transmission Date: 20190417
  Serious: No
  Sender: FDA-Public Use
  Company Number: US-ASTRAZENECA-2018SF08209

PATIENT
  Age: 908 Month
  Sex: Female
  Weight: 81.6 kg

DRUGS (13)
  1. ALLEGRA [Concomitant]
     Active Substance: FEXOFENADINE HYDROCHLORIDE
  2. GARLIC. [Concomitant]
     Active Substance: GARLIC
  3. XANAX [Concomitant]
     Active Substance: ALPRAZOLAM
  4. FASENRA [Suspect]
     Active Substance: BENRALIZUMAB
     Indication: EOSINOPHIL COUNT ABNORMAL
     Dosage: ONCE EVERY 4 WEEKS FOR THE FIRST 3 DOSES, THEN ONCE EVERY 8 WEEKS THEREAFTER30.0MG UNKNOWN
     Route: 058
     Dates: start: 20180515
  5. FASENRA [Suspect]
     Active Substance: BENRALIZUMAB
     Indication: ASTHMA
     Dosage: ONCE EVERY 4 WEEKS FOR THE FIRST 3 DOSES, THEN ONCE EVERY 8 WEEKS THEREAFTER30.0MG UNKNOWN
     Route: 058
     Dates: start: 201711
  6. FASENRA [Suspect]
     Active Substance: BENRALIZUMAB
     Indication: ASTHMA
     Dosage: ONCE EVERY 4 WEEKS FOR THE FIRST 3 DOSES, THEN ONCE EVERY 8 WEEKS THEREAFTER30.0MG UNKNOWN
     Route: 058
     Dates: start: 20180515
  7. EPIPEN [Concomitant]
     Active Substance: EPINEPHRINE
     Dosage: 0.3MG/0.3ML
  8. HYDROCHLOROTHIAZIDE. [Concomitant]
     Active Substance: HYDROCHLOROTHIAZIDE
  9. TURMERIC ROOT EXTRACT [Concomitant]
  10. CELEBREX [Concomitant]
     Active Substance: CELECOXIB
  11. FASENRA [Suspect]
     Active Substance: BENRALIZUMAB
     Indication: EOSINOPHIL COUNT ABNORMAL
     Dosage: ONCE EVERY 4 WEEKS FOR THE FIRST 3 DOSES, THEN ONCE EVERY 8 WEEKS THEREAFTER30.0MG UNKNOWN
     Route: 058
     Dates: start: 201711
  12. PROAIR HFA [Concomitant]
     Active Substance: ALBUTEROL SULFATE
     Dosage: 90 MCG/ACTUATION
     Route: 055
  13. VITAMIN D3 [Concomitant]
     Active Substance: CHOLECALCIFEROL
     Dosage: 1000 UNIT

REACTIONS (9)
  - Productive cough [Not Recovered/Not Resolved]
  - General physical health deterioration [Unknown]
  - Hypersensitivity [Unknown]
  - Product dose omission [Unknown]
  - Secretion discharge [Not Recovered/Not Resolved]
  - Asthma [Unknown]
  - Cough [Not Recovered/Not Resolved]
  - Dyspnoea [Unknown]
  - Headache [Unknown]

NARRATIVE: CASE EVENT DATE: 201808
